FAERS Safety Report 15251059 (Version 1)
Quarter: 2018Q3

REPORT INFORMATION
  Report Type: Spontaneous
  Country: US (occurrence: US)
  Receive Date: 20180716
  Receipt Date: 20180716
  Transmission Date: 20181010
  Serious: No
  Sender: FDA-Public Use
  Company Number: None

PATIENT
  Age: 60 Year
  Sex: Male

DRUGS (1)
  1. GAMUNEX?C [Suspect]
     Active Substance: HUMAN IMMUNOGLOBULIN G
     Dates: start: 20180716, end: 20180716

REACTIONS (3)
  - Hyperhidrosis [None]
  - Infusion related reaction [None]
  - Underdose [None]

NARRATIVE: CASE EVENT DATE: 20180716
